FAERS Safety Report 25471276 (Version 1)
Quarter: 2025Q2

REPORT INFORMATION
  Report Type: Spontaneous
  Country: AT (occurrence: AT)
  Receive Date: 20250624
  Receipt Date: 20250624
  Transmission Date: 20250717
  Serious: Yes (Other)
  Sender: ALEXION PHARMACEUTICALS
  Company Number: None

PATIENT

DRUGS (4)
  1. DAPAGLIFLOZIN [Suspect]
     Active Substance: DAPAGLIFLOZIN
     Route: 065
  2. AMLODIPINE BESYLATE\CANDESARTAN CILEXETIL [Suspect]
     Active Substance: AMLODIPINE BESYLATE\CANDESARTAN CILEXETIL
     Route: 065
  3. ASPIRIN [Suspect]
     Active Substance: ASPIRIN
     Route: 065
  4. EZETIMIBE\ROSUVASTATIN CALCIUM [Suspect]
     Active Substance: EZETIMIBE\ROSUVASTATIN CALCIUM
     Route: 065

REACTIONS (9)
  - Seizure [Unknown]
  - Back pain [Unknown]
  - Abdominal pain [Unknown]
  - Dysphagia [Unknown]
  - Dry mouth [Unknown]
  - Swollen tongue [Unknown]
  - Dysgeusia [Unknown]
  - Asthenopia [Unknown]
  - Pollakiuria [Unknown]
